FAERS Safety Report 23015750 (Version 1)
Quarter: 2023Q4

REPORT INFORMATION
  Report Type: Spontaneous
  Country: FR (occurrence: FR)
  Receive Date: 20231002
  Receipt Date: 20231002
  Transmission Date: 20240110
  Serious: Yes (Hospitalization)
  Sender: FDA-Public Use
  Company Number: None

PATIENT
  Age: 53 Year
  Sex: Male
  Weight: 78.6 kg

DRUGS (15)
  1. TERBINAFINE [Suspect]
     Active Substance: TERBINAFINE
     Indication: Fungal foot infection
     Dosage: 250 MILLIGRAM, QD
     Route: 048
     Dates: start: 20230619, end: 20230702
  2. AMLODIPINE [Concomitant]
     Active Substance: AMLODIPINE BESYLATE
     Dosage: UNK
     Route: 065
  3. PLAQUENIL [Concomitant]
     Active Substance: HYDROXYCHLOROQUINE SULFATE
     Dosage: UNK
     Route: 065
  4. ATORVASTATIN [Concomitant]
     Active Substance: ATORVASTATIN
     Dosage: UNK
     Route: 065
  5. LOVENOX [Concomitant]
     Active Substance: ENOXAPARIN SODIUM
     Dosage: UNK
     Route: 065
  6. OXYCODONE HYDROCHLORIDE [Concomitant]
     Active Substance: OXYCODONE HYDROCHLORIDE
     Dosage: 5 MILLIGRAM
     Route: 065
  7. CLOXACILLIN [Concomitant]
     Active Substance: CLOXACILLIN
     Dosage: UNK
     Route: 065
  8. BETAMETHASONE VALERATE [Concomitant]
     Active Substance: BETAMETHASONE VALERATE
     Dosage: UNK
     Route: 065
  9. KARDEGIC [Concomitant]
     Active Substance: ASPIRIN DL-LYSINE
     Dosage: 75 MILLIGRAM
     Route: 065
  10. PERINDOPRIL [Concomitant]
     Active Substance: PERINDOPRIL
     Dosage: UNK
     Route: 065
  11. NEFOPAM [Concomitant]
     Active Substance: NEFOPAM
     Dosage: UNK
     Route: 065
  12. ACETAMINOPHEN [Concomitant]
     Active Substance: ACETAMINOPHEN
     Dosage: UNK
     Route: 065
  13. POLYETHYLENE GLYCOLS [Concomitant]
     Active Substance: POLYETHYLENE GLYCOLS
     Dosage: UNK
     Route: 065
  14. ACEBUTOLOL [Concomitant]
     Active Substance: ACEBUTOLOL
     Dosage: UNK
     Route: 065
  15. NITROGLYCERIN [Concomitant]
     Active Substance: NITROGLYCERIN
     Dosage: 0,30 MG/DOSE, SOLUTION FOR ORAL SPRAY
     Route: 065

REACTIONS (2)
  - Autoimmune hepatitis [Recovering/Resolving]
  - Subacute cutaneous lupus erythematosus [Recovering/Resolving]

NARRATIVE: CASE EVENT DATE: 20230622
